FAERS Safety Report 7487577-7 (Version None)
Quarter: 2011Q2

REPORT INFORMATION
  Report Type: 
  Country: None (occurrence: None)
  Receive Date: 20110511
  Receipt Date: 20110429
  Transmission Date: 20111010
  Serious: Yes (Hospitalization)
  Sender: FDA-Public Use
  Company Number: IDA-00537

PATIENT
  Age: 67 Year
  Sex: Male

DRUGS (5)
  1. PROPRANOLOL [Suspect]
     Dosage: 40 MG DAILY ORAL FORMULATION: TABLET
     Route: 048
     Dates: start: 20091001
  2. ACETAMINOPHEN [Concomitant]
  3. FUROSEMIDE [Suspect]
     Indication: HEPATIC CIRRHOSIS
     Dosage: 80 MG DAILY
     Dates: start: 20100113, end: 20100117
  4. SPIRONOLACTONE [Suspect]
     Dosage: 100 MG DAILY
     Dates: start: 20090901, end: 20100117
  5. OMEPRAZOLE [Concomitant]

REACTIONS (2)
  - DRUG INTERACTION [None]
  - RENAL FAILURE ACUTE [None]
